FAERS Safety Report 9011143 (Version 1)
Quarter: 2013Q1

REPORT INFORMATION
  Report Type: Spontaneous
  Country: US (occurrence: US)
  Receive Date: 20130109
  Receipt Date: 20130109
  Transmission Date: 20140127
  Serious: Yes (Hospitalization, Other)
  Sender: FDA-Public Use
  Company Number: US-ELI_LILLY_AND_COMPANY-US201201007510

PATIENT
  Sex: Male

DRUGS (6)
  1. BYETTA [Suspect]
     Dosage: 5 UG, BID
  2. NORVASC [Concomitant]
     Dosage: 5 MG, QD
  3. LEVOTHYROXINE [Concomitant]
     Dosage: 175 UG, QD
  4. CRESTOR [Concomitant]
     Dosage: 20 MG, QD
  5. ASPIRIN [Concomitant]
     Dosage: 81 MG, QD
  6. HYDROCHLOROTHIAZIDE [Concomitant]
     Dosage: 12.5 MG, EACH MORNING

REACTIONS (4)
  - Syncope [Recovered/Resolved]
  - Hypovolaemia [Recovered/Resolved]
  - Dehydration [Recovered/Resolved]
  - Renal failure acute [Recovered/Resolved]
